FAERS Safety Report 5981217-1 (Version None)
Quarter: 2008Q4

REPORT INFORMATION
  Report Type: 
  Country: None (occurrence: None)
  Receive Date: 20081205
  Receipt Date: 20081023
  Transmission Date: 20090506
  Serious: Yes (Other)
  Sender: FDA-Public Use
  Company Number: DE-BRISTOL-MYERS SQUIBB COMPANY-14430052

PATIENT
  Age: 17 Year
  Sex: Female
  Weight: 55 kg

DRUGS (2)
  1. IRBESARTAN [Suspect]
  2. LAMOTRIGINE [Suspect]

REACTIONS (2)
  - NAUSEA [None]
  - SUICIDAL IDEATION [None]
